FAERS Safety Report 13117902 (Version 2)
Quarter: 2017Q2

REPORT INFORMATION
  Report Type: Spontaneous
  Country: US (occurrence: US)
  Receive Date: 20170116
  Receipt Date: 20170406
  Transmission Date: 20170830
  Serious: No
  Sender: FDA-Public Use
  Company Number: US-JNJFOC-20161221291

PATIENT
  Age: 53 Year
  Sex: Male

DRUGS (1)
  1. RISPERDAL CONSTA [Suspect]
     Active Substance: RISPERIDONE
     Indication: PRODUCT USED FOR UNKNOWN INDICATION
     Dosage: 50MG IN COMBINATION WITH RISPERDAL CONSTA 12.5MG
     Route: 030

REACTIONS (5)
  - Off label use [Unknown]
  - Incorrect dose administered [Unknown]
  - Syringe issue [Unknown]
  - Drug prescribing error [Unknown]
  - Device breakage [Unknown]

NARRATIVE: CASE EVENT DATE: 20161221
